FAERS Safety Report 9103090 (Version 1)
Quarter: 2013Q1

REPORT INFORMATION
  Report Type: Spontaneous
  Country: BR (occurrence: BR)
  Receive Date: 20130218
  Receipt Date: 20130218
  Transmission Date: 20140127
  Serious: Yes (Other)
  Sender: FDA-Public Use
  Company Number: BR-ELI_LILLY_AND_COMPANY-BR201302001197

PATIENT
  Age: 72 Year
  Sex: Female
  Weight: 72 kg

DRUGS (4)
  1. CYMBALTA [Suspect]
     Indication: OSTEOARTHRITIS
     Dosage: 30 MG, EACH MORNING
     Route: 065
     Dates: start: 201211
  2. CYMBALTA [Suspect]
     Dosage: 60 MG, EACH MORNING
     Route: 065
     Dates: start: 201212
  3. CYMBALTA [Suspect]
     Dosage: 60 MG, EACH MORNING
     Route: 065
     Dates: start: 201212
  4. CYMBALTA [Suspect]
     Dosage: 30 MG, EACH MORNING
     Route: 065
     Dates: start: 20130203

REACTIONS (11)
  - Hepatic enzyme abnormal [Recovering/Resolving]
  - General physical condition abnormal [Recovering/Resolving]
  - Depressed mood [Recovering/Resolving]
  - Depressed mood [Recovering/Resolving]
  - Off label use [Unknown]
  - Chills [Recovering/Resolving]
  - Hyperhidrosis [Recovering/Resolving]
  - Vision blurred [Recovering/Resolving]
  - Tremor [Recovering/Resolving]
  - Somnolence [Recovering/Resolving]
  - Fatigue [Recovering/Resolving]
